FAERS Safety Report 9921919 (Version 2)
Quarter: 2014Q1

REPORT INFORMATION
  Report Type: Spontaneous
  Country: NL (occurrence: NL)
  Receive Date: 20140225
  Receipt Date: 20140225
  Transmission Date: 20141002
  Serious: Yes (Other)
  Sender: FDA-Public Use
  Company Number: NL-WATSON-2013-23185

PATIENT
  Age: 58 Year
  Sex: Female
  Weight: 63 kg

DRUGS (3)
  1. IRBESARTAN ACTAVIS [Suspect]
     Indication: HYPERTENSION
     Dosage: 300 MG, DAILY; 1 TIME PER DAY 2 PIECE (S) (1 KEER PER DAG 2 STUK(S))
     Route: 048
     Dates: start: 20130607, end: 20130612
  2. PYRIDOXINE                         /00058902/ [Concomitant]
     Indication: PRODUCT USED FOR UNKNOWN INDICATION
     Dosage: 50 MG, DAILY; 1 TIME PER DAY 1 PIECE (S) (1 KEER PER DAG 1 STUK(S)
     Route: 048
     Dates: start: 2008
  3. SPIRONOLACTON [Concomitant]
     Indication: PRODUCT USED FOR UNKNOWN INDICATION
     Dosage: 25 MG, DAILY; 1 TIME PER DAY 1 PIECE (S) (1 KEER PER DAG 1 STUK(S)
     Route: 048
     Dates: start: 2008

REACTIONS (6)
  - Hypersensitivity [Recovering/Resolving]
  - Arthritis [Recovering/Resolving]
  - Erythema [Recovering/Resolving]
  - Blister [Recovering/Resolving]
  - Rash [Recovering/Resolving]
  - Therapeutic response unexpected with drug substitution [Recovering/Resolving]
